FAERS Safety Report 8135866-5 (Version None)
Quarter: 2012Q1

REPORT INFORMATION
  Report Type: 
  Country: None (occurrence: None)
  Receive Date: 20120214
  Receipt Date: 20120123
  Transmission Date: 20120608
  Serious: Yes (Other)
  Sender: FDA-Public Use
  Company Number: JP-GLAXOSMITHKLINE-B0777749A

PATIENT
  Sex: Male

DRUGS (10)
  1. AMOXAPINE [Concomitant]
     Route: 048
  2. MUCOSTA [Concomitant]
     Route: 048
  3. DESYREL [Concomitant]
     Route: 048
  4. DEPAS [Concomitant]
     Route: 048
  5. LAMICTAL [Suspect]
     Dosage: 50MG PER DAY
     Route: 048
     Dates: start: 20111221, end: 20120103
  6. ESTAZOLAM [Concomitant]
     Route: 048
  7. LAMICTAL [Suspect]
     Indication: DEPRESSION
     Dosage: 25MG PER DAY
     Route: 048
     Dates: start: 20111207, end: 20111220
  8. LAMICTAL [Suspect]
     Dosage: 100MG PER DAY
     Route: 048
     Dates: start: 20120104, end: 20120113
  9. LITHIUM CARBONATE [Concomitant]
     Route: 048
  10. PHENOBARBITAL TAB [Concomitant]
     Route: 048

REACTIONS (12)
  - PRURITUS [None]
  - WHITE BLOOD CELL COUNT INCREASED [None]
  - ERYTHEMA [None]
  - LYMPHOCYTE PERCENTAGE DECREASED [None]
  - STOMATITIS [None]
  - DRUG ERUPTION [None]
  - SENSATION OF FOREIGN BODY [None]
  - ECZEMA [None]
  - EYELID OEDEMA [None]
  - SWELLING FACE [None]
  - ORAL PAIN [None]
  - EOSINOPHIL PERCENTAGE INCREASED [None]
